FAERS Safety Report 5507071-X (Version None)
Quarter: 2007Q4

REPORT INFORMATION
  Report Type: 
  Country: None (occurrence: None)
  Receive Date: 20071102
  Receipt Date: 20071018
  Transmission Date: 20080405
  Serious: Yes (Hospitalization)
  Sender: FDA-Public Use
  Company Number: PRIO50412007073

PATIENT
  Sex: Male
  Weight: 96.6162 kg

DRUGS (6)
  1. FLUOROURACIL [Suspect]
     Indication: COLON CANCER METASTATIC
     Dates: start: 20070108, end: 20070827
  2. DEXAMETHASONE [Concomitant]
  3. DIPHENHYDRAMINE HCL [Concomitant]
  4. CLEOCIN T-GEL [Concomitant]
  5. MAGNESIUM OXIDE [Concomitant]
  6. GLUCOVANCE [Concomitant]

REACTIONS (10)
  - ATELECTASIS [None]
  - BLOOD CULTURE POSITIVE [None]
  - DEHYDRATION [None]
  - HYPONATRAEMIA [None]
  - LUNG INFILTRATION [None]
  - METASTASES TO LUNG [None]
  - NEUTROPENIA [None]
  - PNEUMONIA [None]
  - RENAL FAILURE [None]
  - STAPHYLOCOCCAL INFECTION [None]
